FAERS Safety Report 7895672-3 (Version None)
Quarter: 2011Q4

REPORT INFORMATION
  Report Type: 
  Country: None (occurrence: None)
  Receive Date: 20111027
  Receipt Date: 20100928
  Transmission Date: 20120403
  Serious: Yes (Hospitalization)
  Sender: FDA-Public Use
  Company Number: WAES 1009USA05340

PATIENT
  Sex: Female

DRUGS (1)
  1. MEVACOR [Suspect]
     Dosage: PO
     Route: 048

REACTIONS (3)
  - RENAL DISORDER [None]
  - MUSCLE DISORDER [None]
  - URINE COLOUR ABNORMAL [None]
